FAERS Safety Report 19195428 (Version 2)
Quarter: 2021Q2

REPORT INFORMATION
  Report Type: Spontaneous
  Country: US (occurrence: US)
  Receive Date: 20210429
  Receipt Date: 20210510
  Transmission Date: 20210717
  Serious: Yes (Other)
  Sender: FDA-Public Use
  Company Number: US-DRREDDYS-USA/USA/21/0134884

PATIENT
  Age: 15 Year
  Sex: Female

DRUGS (16)
  1. LANSOPRAZOLE DELAYED?RELEASE CAPSULES [Suspect]
     Active Substance: LANSOPRAZOLE
     Indication: PRODUCT USED FOR UNKNOWN INDICATION
  2. ETHOSUXIMIDE. [Interacting]
     Active Substance: ETHOSUXIMIDE
     Indication: PRODUCT USED FOR UNKNOWN INDICATION
     Dosage: ETHOSUXIMIDE 10 MG/KG TWICE DAILY ON ADMISSION DAY 3
  3. CLOBAZAM. [Interacting]
     Active Substance: CLOBAZAM
     Indication: SEIZURE
  4. PHENYTOIN. [Suspect]
     Active Substance: PHENYTOIN
     Indication: EPILEPSY
  5. MIDAZOLAM. [Suspect]
     Active Substance: MIDAZOLAM
     Indication: EPILEPSY
  6. RANITIDINE. [Interacting]
     Active Substance: RANITIDINE
     Indication: PRODUCT USED FOR UNKNOWN INDICATION
  7. ETHOSUXIMIDE. [Interacting]
     Active Substance: ETHOSUXIMIDE
     Dosage: INCREASED TO 38 MG/KG TWICE DAILY TO REACH THERAPEUTIC LEVEL OF 120 ?G/ML.
  8. FLUTICASONE PROPIONATE. [Interacting]
     Active Substance: FLUTICASONE PROPIONATE
     Indication: PRODUCT USED FOR UNKNOWN INDICATION
  9. GENTAMICIN. [Suspect]
     Active Substance: GENTAMICIN
     Indication: PRODUCT USED FOR UNKNOWN INDICATION
  10. FOSPHENYTOIN SODIUM. [Suspect]
     Active Substance: FOSPHENYTOIN SODIUM
     Indication: EPILEPSY
  11. VALPROIC ACID. [Suspect]
     Active Substance: VALPROIC ACID
     Indication: EPILEPSY
  12. ETHOSUXIMIDE. [Interacting]
     Active Substance: ETHOSUXIMIDE
     Dosage: OVER THE NEXT 2 DAYS, THE DOSE OF ETHOSUXIMIDE WAS INCREASED TO 30 MG/KG TWICE DAILY.
  13. PHENOBARBITAL. [Suspect]
     Active Substance: PHENOBARBITAL
     Indication: EPILEPSY
  14. LEVETIRACETAM. [Suspect]
     Active Substance: LEVETIRACETAM
     Indication: EPILEPSY
     Route: 048
  15. CLONAZEPAM. [Interacting]
     Active Substance: CLONAZEPAM
     Indication: SEIZURE
  16. DIAZEPAM. [Suspect]
     Active Substance: DIAZEPAM
     Indication: SEIZURE

REACTIONS (4)
  - Oropharyngeal oedema [Recovered/Resolved]
  - Drug ineffective [Unknown]
  - Drug interaction [Unknown]
  - Macroglossia [Recovered/Resolved]
